FAERS Safety Report 7569202 (Version 2)
Quarter: 2013Q1

REPORT INFORMATION
  Report Type: Spontaneous
  Country: US (occurrence: US)
  Receive Date: 20100901
  Receipt Date: 20130214
  Transmission Date: 20140127
  Serious: No
  Sender: FDA-Public Use
  Company Number: US-BIOGENIDEC-2010BI028449

PATIENT
  Age: 51 Year
  Sex: Female

DRUGS (3)
  1. AVONEX [Suspect]
     Indication: MULTIPLE SCLEROSIS
     Route: 030
     Dates: start: 20040116
  2. LOVAZA [Concomitant]
     Indication: BLOOD CHOLESTEROL INCREASED
  3. ZETIA [Concomitant]
     Indication: BLOOD CHOLESTEROL INCREASED

REACTIONS (8)
  - Hypoglycaemia [Unknown]
  - Injection site mass [Recovered/Resolved with Sequelae]
  - Influenza like illness [Recovered/Resolved with Sequelae]
  - Headache [Recovered/Resolved]
  - Arthralgia [Recovered/Resolved]
  - Injection site pain [Recovered/Resolved with Sequelae]
  - Injection site reaction [Recovered/Resolved with Sequelae]
  - Injection site bruising [Recovered/Resolved with Sequelae]
